FAERS Safety Report 11330315 (Version 1)
Quarter: 2015Q3

REPORT INFORMATION
  Report Type: Report from Study
  Country: US (occurrence: US)
  Receive Date: 20150803
  Receipt Date: 20150803
  Transmission Date: 20151125
  Serious: No
  Sender: FDA-Public Use
  Company Number: PHEH2015US014807

PATIENT
  Sex: Female

DRUGS (1)
  1. FARYDAK [Suspect]
     Active Substance: PANOBINOSTAT
     Indication: BONE CANCER
     Dosage: 20 MG, QOD
     Route: 048
     Dates: start: 20150708

REACTIONS (3)
  - Diarrhoea [Unknown]
  - Off label use [Unknown]
  - Constipation [Unknown]
